FAERS Safety Report 15998283 (Version 4)
Quarter: 2019Q2

REPORT INFORMATION
  Report Type: Report from Study
  Country: US (occurrence: US)
  Receive Date: 20190223
  Receipt Date: 20190517
  Transmission Date: 20190711
  Serious: Yes (Other)
  Sender: FDA-Public Use
  Company Number: US-TAKEDA-2018TUS036158

PATIENT
  Sex: Male

DRUGS (3)
  1. PONATINIB [Suspect]
     Active Substance: PONATINIB
     Dosage: 15 MILLIGRAM, QD
     Route: 048
  2. TACROLIMUS. [Concomitant]
     Active Substance: TACROLIMUS
     Dosage: UNK UNK, BID
  3. PONATINIB [Suspect]
     Active Substance: PONATINIB
     Indication: CHRONIC MYELOID LEUKAEMIA
     Dosage: 30 MILLIGRAM, QD
     Route: 048
     Dates: start: 20180726

REACTIONS (8)
  - Blast cell count increased [Recovering/Resolving]
  - Nephrolithiasis [Unknown]
  - Dry eye [Unknown]
  - Graft versus host disease [Unknown]
  - Rash [Unknown]
  - Liver function test increased [Unknown]
  - Dry mouth [Unknown]
  - Vision blurred [Recovering/Resolving]
